FAERS Safety Report 5045844-0 (Version None)
Quarter: 2006Q2

REPORT INFORMATION
  Report Type: 
  Country: None (occurrence: None)
  Receive Date: 20060629
  Receipt Date: 20060616
  Transmission Date: 20061013
  Serious: Yes (Hospitalization)
  Sender: FDA-Public Use
  Company Number: 2006067365

PATIENT
  Age: 85 Year
  Sex: Male
  Weight: 62.2 kg

DRUGS (4)
  1. UNASYN [Suspect]
     Indication: PNEUMONIA
     Dosage: 3 GRAM (1.5 GRAM,2 IN 1 D), INTRAVENOUS
     Route: 042
     Dates: start: 20060516, end: 20060519
  2. CHLORMADINONE ACETATE TAB [Concomitant]
  3. VOLTAREN [Concomitant]
  4. BACAMPICILLIN HCL [Concomitant]

REACTIONS (16)
  - ATRIAL FIBRILLATION [None]
  - BLOOD PRESSURE DIASTOLIC DECREASED [None]
  - CATHETER RELATED COMPLICATION [None]
  - CONDITION AGGRAVATED [None]
  - EXTRADURAL HAEMATOMA [None]
  - FALL [None]
  - HAEMORRHAGIC DISORDER [None]
  - IMMUNODEFICIENCY [None]
  - LUMBAR VERTEBRAL FRACTURE [None]
  - OCCULT BLOOD POSITIVE [None]
  - PETECHIAE [None]
  - PLATELET COUNT DECREASED [None]
  - PURPURA [None]
  - RESPIRATORY DISORDER [None]
  - SPINAL COMPRESSION FRACTURE [None]
  - THROMBOSIS IN DEVICE [None]
